FAERS Safety Report 21628798 (Version 3)
Quarter: 2023Q1

REPORT INFORMATION
  Report Type: Spontaneous
  Country: CN (occurrence: CN)
  Receive Date: 20221122
  Receipt Date: 20230120
  Transmission Date: 20230417
  Serious: Yes (Hospitalization, Other)
  Sender: FDA-Public Use
  Company Number: CN-ABBVIE-4207183

PATIENT
  Age: 18 Year
  Sex: Male

DRUGS (12)
  1. VENCLEXTA [Suspect]
     Active Substance: VENETOCLAX
     Indication: Acute biphenotypic leukaemia
     Dosage: DAY 3 TO DAY 21
     Route: 048
     Dates: start: 2021
  2. VENCLEXTA [Suspect]
     Active Substance: VENETOCLAX
     Indication: Acute biphenotypic leukaemia
     Dosage: FIRST DAY
     Route: 048
     Dates: start: 2021, end: 2021
  3. VENCLEXTA [Suspect]
     Active Substance: VENETOCLAX
     Indication: Acute biphenotypic leukaemia
     Dosage: DAY 2
     Route: 048
     Dates: start: 2021, end: 2021
  4. PIRARUBICIN [Concomitant]
     Active Substance: PIRARUBICIN
     Indication: Acute biphenotypic leukaemia
     Dosage: 20 MILLIGRAM
     Route: 042
     Dates: start: 2021
  5. CYTARABINE [Concomitant]
     Active Substance: CYTARABINE
     Indication: Acute biphenotypic leukaemia
     Dosage: 20 MILLIGRAM FROM DAY 1 TO DAY 14.
     Dates: start: 2021, end: 2021
  6. AMPHOTERICIN B [Concomitant]
     Active Substance: AMPHOTERICIN B
     Indication: Anti-infective therapy
     Dates: start: 2021
  7. PREDNISONE [Concomitant]
     Active Substance: PREDNISONE
     Indication: Acute biphenotypic leukaemia
     Dosage: 60 MILLIGRAM FROM DAY 1 TO DAY 7.
     Dates: start: 2021, end: 2021
  8. VINDESINE SULFATE [Concomitant]
     Active Substance: VINDESINE SULFATE
     Indication: Acute biphenotypic leukaemia
     Dosage: 3 MILLIGRAM ON DAY 1 TO DAY 8
     Route: 042
     Dates: start: 2021, end: 2021
  9. MEROPENEM [Concomitant]
     Active Substance: MEROPENEM
     Indication: Infection prophylaxis
     Dates: start: 2021, end: 2021
  10. FEBUXOSTAT [Concomitant]
     Active Substance: FEBUXOSTAT
     Indication: Prophylaxis
     Dates: start: 2021, end: 2021
  11. ACLARUBICIN [Concomitant]
     Active Substance: ACLARUBICIN
     Indication: Acute biphenotypic leukaemia
     Dosage: ON DAY DAY 1 TO DAY 4
     Route: 042
     Dates: start: 2021, end: 2021
  12. POSACONAZOLE [Concomitant]
     Active Substance: POSACONAZOLE
     Indication: Acute biphenotypic leukaemia
     Dates: start: 2021

REACTIONS (4)
  - Agranulocytosis [Recovered/Resolved]
  - Off label use [Unknown]
  - Cytopenia [Recovered/Resolved]
  - Pyrexia [Recovered/Resolved]

NARRATIVE: CASE EVENT DATE: 20210101
